FAERS Safety Report 16321412 (Version 5)
Quarter: 2019Q3

REPORT INFORMATION
  Report Type: Report from Study
  Country: None (occurrence: GB)
  Receive Date: 20190516
  Receipt Date: 20190714
  Transmission Date: 20191004
  Serious: Yes (Hospitalization)
  Sender: FDA-Public Use
  Company Number: GB-ABBVIE-19S-167-2759444-00

PATIENT
  Sex: Female

DRUGS (1)
  1. DUODOPA [Suspect]
     Active Substance: CARBIDOPA\LEVODOPA
     Indication: PARKINSON^S DISEASE
     Dosage: 100ML CASSETTE??5MG/1ML??20MG/1ML
     Route: 050
     Dates: end: 2019

REACTIONS (5)
  - Device leakage [Unknown]
  - Fall [Not Recovered/Not Resolved]
  - Unintentional medical device removal [Unknown]
  - Device dislocation [Unknown]
  - Hip fracture [Not Recovered/Not Resolved]

NARRATIVE: CASE EVENT DATE: 2019
